FAERS Safety Report 19260459 (Version 1)
Quarter: 2021Q2

REPORT INFORMATION
  Report Type: Other
  Country: ES (occurrence: ES)
  Receive Date: 20210514
  Receipt Date: 20210514
  Transmission Date: 20210717
  Serious: Yes (Hospitalization)
  Sender: FDA-Public Use
  Company Number: ES-B.BRAUN MEDICAL INC.-2110571

PATIENT
  Age: 21 Year
  Sex: Male

DRUGS (7)
  1. CIPROFLOXACIN. [Concomitant]
     Active Substance: CIPROFLOXACIN
  2. METRONIDAZOLE INJECTION USP (5 MG/ML) IN PAB? PLASTIC CONTAINER (NDA 0 [Suspect]
     Active Substance: METRONIDAZOLE
  3. CEFTAZIDIME. [Concomitant]
     Active Substance: CEFTAZIDIME
  4. CEFTRIAXONE. [Concomitant]
     Active Substance: CEFTRIAXONE
  5. LINEZOLID. [Concomitant]
     Active Substance: LINEZOLID
  6. COTRIMOXAZOLE [Concomitant]
     Active Substance: SULFAMETHOXAZOLE\TRIMETHOPRIM
  7. DEXAMETHASONE. [Concomitant]
     Active Substance: DEXAMETHASONE

REACTIONS (4)
  - Headache [None]
  - Pyrexia [None]
  - Dyspepsia [None]
  - Liver disorder [None]
